FAERS Safety Report 4358590-3 (Version None)
Quarter: 2004Q2

REPORT INFORMATION
  Report Type: 
  Country: None (occurrence: None)
  Receive Date: 20040514
  Receipt Date: 20040326
  Transmission Date: 20050107
  Serious: Yes (Death, Other)
  Sender: FDA-Public Use
  Company Number: 2003-BP-07347PF

PATIENT
  Age: 76 Year
  Sex: Male

DRUGS (2)
  1. SPIRIVA [Suspect]
     Dosage: 18 MCG (18 MCG, DAILY)   IH
     Route: 055
  2. CORTICOIDS [Concomitant]

REACTIONS (10)
  - CHRONIC OBSTRUCTIVE AIRWAYS DISEASE [None]
  - COR PULMONALE [None]
  - DIALYSIS [None]
  - ERYSIPELAS [None]
  - FEMUR FRACTURE [None]
  - MULTI-ORGAN FAILURE [None]
  - PULMONARY HYPERTENSION [None]
  - RENAL FAILURE ACUTE [None]
  - RESPIRATORY ARREST [None]
  - VENOUS THROMBOSIS LIMB [None]
